FAERS Safety Report 4942967-9 (Version None)
Quarter: 2006Q1

REPORT INFORMATION
  Report Type: 
  Country: None (occurrence: None)
  Receive Date: 20060314
  Receipt Date: 20050919
  Transmission Date: 20060701
  Serious: Yes (Death)
  Sender: FDA-Public Use
  Company Number: US-GLAXOSMITHKLINE-A0574697A

PATIENT
  Age: 46 Year
  Sex: Male
  Weight: 100 kg

DRUGS (3)
  1. WELLBUTRIN XL [Suspect]
     Indication: ANXIETY
     Dosage: 300MG PER DAY
     Route: 048
     Dates: start: 20040407
  2. DESOXYN [Concomitant]
     Indication: NARCOLEPSY
  3. ZOCOR [Concomitant]

REACTIONS (12)
  - AGITATION [None]
  - ANOREXIA [None]
  - ANXIETY [None]
  - COMPLETED SUICIDE [None]
  - CONFUSIONAL STATE [None]
  - EMOTIONAL DISORDER [None]
  - HYPERHIDROSIS [None]
  - INJURY ASPHYXIATION [None]
  - NERVOUSNESS [None]
  - OBSESSIVE THOUGHTS [None]
  - RESTLESSNESS [None]
  - WEIGHT DECREASED [None]
